FAERS Safety Report 7542963-1 (Version None)
Quarter: 2011Q2

REPORT INFORMATION
  Report Type: 
  Country: None (occurrence: None)
  Receive Date: 20110613
  Receipt Date: 20110601
  Transmission Date: 20111010
  Serious: Yes (Other)
  Sender: FDA-Public Use
  Company Number: PHHY2011US48431

PATIENT
  Sex: Female

DRUGS (10)
  1. GILENYA [Suspect]
     Indication: MULTIPLE SCLEROSIS
     Dosage: 0.5 MG, DAILY
     Route: 048
     Dates: start: 20110506
  2. DETROL [Concomitant]
     Dosage: UNK
  3. APAP TAB [Concomitant]
     Dosage: UNK
  4. PAROXETINE HCL [Concomitant]
     Dosage: UNK
  5. ALPRAZOLAM [Concomitant]
     Dosage: UNK
  6. HYDROCODONE BITARTRATE [Concomitant]
     Dosage: UNK
  7. CALCITONIN [Concomitant]
     Dosage: UNK
  8. OXYBUTYNIN [Concomitant]
     Dosage: UNK
  9. LYRICA [Concomitant]
     Dosage: UNK
  10. CENESTIN [Concomitant]
     Dosage: UNK

REACTIONS (1)
  - URINARY TRACT INFECTION [None]
